FAERS Safety Report 10106348 (Version 2)
Quarter: 2014Q2

REPORT INFORMATION
  Report Type: Other
  Country: US (occurrence: US)
  Receive Date: 20140424
  Receipt Date: 20140612
  Transmission Date: 20141212
  Serious: Yes (Hospitalization, Other)
  Sender: FDA-Public Use
  Company Number: US-GSKPPD-2014GSK000750

PATIENT
  Age: 65 Year
  Sex: Female
  Weight: 154.36 kg

DRUGS (7)
  1. AVANDIA [Suspect]
     Indication: DIABETES MELLITUS
     Dosage: AVANDIA WAS NOT LISTED AMONG THE PATIENT^S ADMISSION/DISCHARGE RECORDS.
     Route: 048
  2. NITROGLYCERIN [Concomitant]
  3. ASPIRIN [Concomitant]
  4. METOPROLOL [Concomitant]
  5. PRAVACHOL [Concomitant]
  6. PLAVIX [Concomitant]
  7. LASIX [Concomitant]

REACTIONS (2)
  - Myocardial infarction [None]
  - Acute coronary syndrome [Recovered/Resolved]
